FAERS Safety Report 4882294-1 (Version None)
Quarter: 2006Q1

REPORT INFORMATION
  Report Type: 
  Country: None (occurrence: None)
  Receive Date: 20060112
  Receipt Date: 20060109
  Transmission Date: 20060701
  Serious: Yes (Hospitalization)
  Sender: FDA-Public Use
  Company Number: 2005119968

PATIENT
  Age: 55 Year
  Sex: Male

DRUGS (7)
  1. TAHOR (ATORVASTATIN) [Suspect]
     Indication: ILL-DEFINED DISORDER
     Dosage: 10 MG (DAILY), ORAL
     Route: 048
     Dates: start: 20030801, end: 20050806
  2. CORDARONE [Suspect]
     Indication: ARRHYTHMIA
     Dosage: 100 MG (DAILY), ORAL
     Route: 048
     Dates: start: 20050620, end: 20050806
  3. PREVISCAN (FLUINDIONE) [Suspect]
     Indication: ARRHYTHMIA
     Dosage: ORAL
     Route: 048
     Dates: start: 20050620
  4. INIPOMP (PANTOPRAZOLE) [Concomitant]
  5. METFORMIN HCL [Concomitant]
  6. SECTRAL [Concomitant]
  7. ASPEGIC 1000 [Concomitant]

REACTIONS (7)
  - ARRHYTHMIA [None]
  - ATRIAL FIBRILLATION [None]
  - DRUG INTERACTION [None]
  - GASTROOESOPHAGEAL REFLUX DISEASE [None]
  - INTERNATIONAL NORMALISED RATIO INCREASED [None]
  - OESOPHAGITIS [None]
  - RHABDOMYOLYSIS [None]
